FAERS Safety Report 12721510 (Version 1)
Quarter: 2016Q3

REPORT INFORMATION
  Report Type: Spontaneous
  Country: US (occurrence: US)
  Receive Date: 20160907
  Receipt Date: 20160907
  Transmission Date: 20161109
  Serious: Yes (Other)
  Sender: FDA-Public Use
  Company Number: US-TARO-2016TAR00743

PATIENT
  Age: 72 Year
  Sex: Male
  Weight: 108.84 kg

DRUGS (6)
  1. LAMOTRIGINE (TEVA) [Suspect]
     Active Substance: LAMOTRIGINE
     Dosage: 50 MG, QHS
     Route: 048
     Dates: start: 2014, end: 201608
  2. LAMOTRIGINE TABLETS 100 MG [Suspect]
     Active Substance: LAMOTRIGINE
     Indication: GENERALISED TONIC-CLONIC SEIZURE
     Dosage: 100 MG, 1X/DAY (AM)
     Route: 048
     Dates: start: 201608
  3. LAMOTRIGINE TABLETS 100 MG [Suspect]
     Active Substance: LAMOTRIGINE
     Dosage: 50 MG, QHS
     Route: 048
     Dates: start: 201608
  4. LAMOTRIGINE (TEVA) [Suspect]
     Active Substance: LAMOTRIGINE
     Dosage: 100 MG, QAM
     Route: 048
     Dates: start: 2014, end: 201608
  5. UNITHROID [Concomitant]
     Active Substance: LEVOTHYROXINE SODIUM
     Dosage: 25 ?G, 3X/DAY
  6. POTASSIUM CITRATE. [Concomitant]
     Active Substance: POTASSIUM CITRATE
     Indication: NEPHROLITHIASIS

REACTIONS (1)
  - Nephrolithiasis [Unknown]

NARRATIVE: CASE EVENT DATE: 20160826
